FAERS Safety Report 11415042 (Version 3)
Quarter: 2016Q3

REPORT INFORMATION
  Report Type: Report from Study
  Country: IT (occurrence: IT)
  Receive Date: 20150825
  Receipt Date: 20160714
  Transmission Date: 20161109
  Serious: Yes (Other)
  Sender: FDA-Public Use
  Company Number: IT-ROCHE-ITM201404IM005663

PATIENT
  Age: 67 Year
  Sex: Female
  Weight: 55 kg

DRUGS (10)
  1. ESBRIET [Suspect]
     Active Substance: PIRFENIDONE
     Route: 048
     Dates: start: 20140422, end: 2014
  2. EUTIROX [Concomitant]
     Active Substance: LEVOTHYROXINE SODIUM
     Dosage: THURSDAY-SUNDAY
     Route: 065
  3. ESBRIET [Suspect]
     Active Substance: PIRFENIDONE
     Dosage: 1068 MG
     Route: 048
     Dates: start: 2014, end: 20140515
  4. ESBRIET [Suspect]
     Active Substance: PIRFENIDONE
     Route: 048
     Dates: end: 20140604
  5. ESBRIET [Suspect]
     Active Substance: PIRFENIDONE
     Route: 048
     Dates: start: 20131220
  6. ESBRIET [Suspect]
     Active Substance: PIRFENIDONE
     Dosage: 1602 MG
     Route: 048
     Dates: start: 2014, end: 2014
  7. ESBRIET [Suspect]
     Active Substance: PIRFENIDONE
     Dosage: 2403 MG
     Route: 048
     Dates: start: 20140331, end: 20140421
  8. ESBRIET [Suspect]
     Active Substance: PIRFENIDONE
     Indication: IDIOPATHIC PULMONARY FIBROSIS
     Route: 048
     Dates: start: 20140317
  9. EUTIROX [Concomitant]
     Active Substance: LEVOTHYROXINE SODIUM
     Dosage: THURSDAY-SUNDAY
     Route: 065
  10. PANTORC [Concomitant]
     Active Substance: PANTOPRAZOLE SODIUM
     Dosage: 40 MILLIGRAM1 DOSAGE FORMSUNIT DOSE: 1 DOSAGE FORMS
     Route: 048

REACTIONS (20)
  - Choking sensation [Recovering/Resolving]
  - Dizziness [Recovering/Resolving]
  - Abdominal distension [Recovering/Resolving]
  - Hot flush [Recovering/Resolving]
  - Rash [Unknown]
  - Vomiting [Recovered/Resolved]
  - Fatigue [Unknown]
  - Asthenia [Unknown]
  - Rash [Recovered/Resolved]
  - Nausea [Unknown]
  - Arthralgia [Recovering/Resolving]
  - Photosensitivity reaction [Unknown]
  - Fatigue [Recovering/Resolving]
  - Headache [Recovering/Resolving]
  - Gastritis [Recovering/Resolving]
  - Abdominal distension [Unknown]
  - Gastritis [Unknown]
  - Nausea [Recovered/Resolved]
  - Asthenia [Recovering/Resolving]
  - Pruritus [Recovered/Resolved]

NARRATIVE: CASE EVENT DATE: 2014
